FAERS Safety Report 5136507-1 (Version None)
Quarter: 2006Q4

REPORT INFORMATION
  Report Type: 
  Country: None (occurrence: None)
  Receive Date: 20061020
  Receipt Date: 20061006
  Transmission Date: 20070319
  Serious: Yes (Hospitalization, Other)
  Sender: FDA-Public Use
  Company Number: 2006BH013892

PATIENT
  Sex: Female
  Weight: 37 kg

DRUGS (5)
  1. EXTRANEAL [Suspect]
     Indication: PERITONEAL DIALYSIS
     Dosage: 2 L; EVERY DAY; IP
     Route: 033
     Dates: start: 20060929, end: 20061006
  2. BEMIKS [Concomitant]
  3. DODEX [Concomitant]
  4. FOSEX [Concomitant]
  5. EPOETIN ALFA [Concomitant]

REACTIONS (4)
  - ABDOMINAL PAIN [None]
  - PYREXIA [None]
  - URINE ABNORMALITY [None]
  - VOMITING [None]
